FAERS Safety Report 19800596 (Version 4)
Quarter: 2022Q2

REPORT INFORMATION
  Report Type: Other
  Country: US (occurrence: None)
  Receive Date: 20210908
  Receipt Date: 20220526
  Transmission Date: 20220721
  Serious: Yes (Hospitalization)
  Sender: FDA-Public Use
  Company Number: US-ROCHE-2900525

PATIENT
  Sex: Female
  Weight: 95.340 kg

DRUGS (6)
  1. OCREVUS [Suspect]
     Active Substance: OCRELIZUMAB
     Indication: Relapsing-remitting multiple sclerosis
     Dosage: DATE OF TREATMENT: 13/SEP/2021
     Route: 042
     Dates: start: 20210913
  2. EXCEDRIN MIGRAINE [Suspect]
     Active Substance: ACETAMINOPHEN\ASPIRIN\CAFFEINE
     Indication: Migraine
     Dosage: UPWARDS OF 6 PILLS A DAY
     Route: 048
     Dates: start: 2018, end: 2019
  3. ESTROGENS [Concomitant]
     Active Substance: ESTROGENS
     Route: 048
  4. PAXIL [Concomitant]
     Active Substance: PAROXETINE HYDROCHLORIDE
     Indication: Hyperhidrosis
     Route: 048
     Dates: start: 2019
  5. AMITRIPTYLINE [Concomitant]
     Active Substance: AMITRIPTYLINE
     Indication: Migraine
     Route: 048
  6. SUMATRIPTAN [Concomitant]
     Active Substance: SUMATRIPTAN
     Dosage: CAN TAKE UP TO 2 EVERY 4 HOURS AS NEEDED; PATIENT ONLY TAKES 1 EVERY 4 HOURS AS NEEDED

REACTIONS (13)
  - COVID-19 pneumonia [Recovered/Resolved]
  - Fall [Unknown]
  - Migraine [Not Recovered/Not Resolved]
  - Contusion [Not Recovered/Not Resolved]
  - Pain [Recovered/Resolved]
  - Mania [Unknown]
  - Attention deficit hyperactivity disorder [Unknown]
  - Change in sustained attention [Unknown]
  - Balance disorder [Unknown]
  - Fatigue [Not Recovered/Not Resolved]
  - Hypokinesia [Not Recovered/Not Resolved]
  - Gait disturbance [Not Recovered/Not Resolved]
  - Headache [Not Recovered/Not Resolved]

NARRATIVE: CASE EVENT DATE: 20190101
